FAERS Safety Report 6184811-0 (Version None)
Quarter: 2009Q2

REPORT INFORMATION
  Report Type: 
  Country: None (occurrence: None)
  Receive Date: 20090508
  Receipt Date: 20090429
  Transmission Date: 20091009
  Serious: Yes (Life-Threatening, Hospitalization, Other)
  Sender: FDA-Public Use
  Company Number: CH-ELI_LILLY_AND_COMPANY-CH200904007041

PATIENT
  Age: 68 Year
  Sex: Female

DRUGS (12)
  1. ZYPREXA [Suspect]
     Indication: SCHIZOPHRENIA, PARANOID TYPE
     Dosage: 20 MG, DAILY (1/D)
     Route: 048
     Dates: start: 20090223, end: 20090313
  2. LEPONEX [Concomitant]
     Indication: SCHIZOPHRENIA, PARANOID TYPE
     Dosage: 300 MG, DAILY (1/D)
     Route: 048
     Dates: start: 20080501, end: 20090312
  3. LEPONEX [Concomitant]
     Dosage: 300 MG, DAILY (1/D)
     Dates: start: 20090330
  4. CIPRALEX [Concomitant]
     Indication: DEPRESSION
     Dosage: 20 MG, DAILY (1/D)
     Route: 048
     Dates: start: 20080912
  5. CIPRALEX [Concomitant]
     Dosage: 10 MG, DAILY (1/D)
  6. ELTROXIN [Concomitant]
     Indication: HYPOTHYROIDISM
     Dosage: 0.05 MG, DAILY (1/D)
     Route: 048
     Dates: start: 20040101, end: 20090401
  7. ELTROXIN [Concomitant]
     Dosage: 0.025 MG, DAILY (1/D)
     Route: 048
     Dates: start: 20090401
  8. METFIN [Concomitant]
     Indication: TYPE 2 DIABETES MELLITUS
     Dosage: 850 MG, DAILY (1/D)
     Route: 048
     Dates: start: 20050101
  9. CO-AMOXI -MEPHA [Concomitant]
  10. SOLIAN [Concomitant]
     Dosage: 50 MG, UNK
     Dates: start: 20090404, end: 20090404
  11. SOLIAN [Concomitant]
     Dosage: 100 MG, UNK
     Dates: start: 20090405, end: 20090405
  12. SOLIAN [Concomitant]
     Dosage: 150 MG, UNK
     Dates: start: 20090406

REACTIONS (5)
  - CONFUSION POSTOPERATIVE [None]
  - DIARRHOEA [None]
  - ILEUS PARALYTIC [None]
  - PSYCHIATRIC DECOMPENSATION [None]
  - THYROXINE INCREASED [None]
